FAERS Safety Report 19398152 (Version 3)
Quarter: 2022Q1

REPORT INFORMATION
  Report Type: Report from Study
  Country: DE (occurrence: DE)
  Receive Date: 20210610
  Receipt Date: 20220217
  Transmission Date: 20220423
  Serious: Yes (Hospitalization, Other)
  Sender: FDA-Public Use
  Company Number: DE-GILEAD-2021-0519378

PATIENT
  Age: 54 Year
  Sex: Male
  Weight: 58 kg

DRUGS (16)
  1. SOFOSBUVIR\VELPATASVIR [Suspect]
     Active Substance: SOFOSBUVIR\VELPATASVIR
     Indication: Chronic hepatitis C
     Dosage: 500 MG, QD
     Route: 048
     Dates: start: 20210120, end: 20210413
  2. METAMIZOL [Suspect]
     Active Substance: METAMIZOLE SODIUM
     Indication: Product used for unknown indication
     Dosage: UNK
     Route: 065
     Dates: start: 20191206
  3. PREGABALIN [Concomitant]
     Active Substance: PREGABALIN
     Indication: Polyneuropathy
  4. RAMIPRIL [Concomitant]
     Active Substance: RAMIPRIL
     Indication: Cardiac failure
  5. BISOPROLOL [Concomitant]
     Active Substance: BISOPROLOL
     Indication: Cardiac failure
  6. AMLODIPINE BESYLATE [Concomitant]
     Active Substance: AMLODIPINE BESYLATE
     Indication: Hypertension
  7. ASPIRIN [Concomitant]
     Active Substance: ASPIRIN
     Indication: Transient ischaemic attack
  8. TAMSULOSIN [Concomitant]
     Active Substance: TAMSULOSIN
     Dosage: UNK
     Dates: start: 20190723
  9. FOLIC ACID [Concomitant]
     Active Substance: FOLIC ACID
     Dosage: UNK
     Dates: start: 20201201
  10. LACTULOSE [Concomitant]
     Active Substance: LACTULOSE
     Dosage: UNK
     Dates: start: 20200123
  11. ENOXAPARIN SODIUM [Concomitant]
     Active Substance: ENOXAPARIN SODIUM
     Dosage: UNK
     Dates: start: 20201201
  12. CLOPIDOGREL [Concomitant]
     Active Substance: CLOPIDOGREL BISULFATE
     Dosage: UNK
     Dates: start: 20210423
  13. ATORVASTATIN [Concomitant]
     Active Substance: ATORVASTATIN
     Dosage: UNK
  14. ETORICOXIB [Concomitant]
     Active Substance: ETORICOXIB
     Dosage: UNK
     Dates: start: 20210520
  15. VIGANTOL OIL [Concomitant]
     Dosage: UNK
     Dates: start: 20211215
  16. LEVOMETHADONE [Concomitant]
     Active Substance: LEVOMETHADONE
     Indication: Drug dependence
     Dosage: UNK
     Route: 048
     Dates: start: 20150428

REACTIONS (8)
  - Arterial occlusive disease [Recovering/Resolving]
  - Cholangitis [Recovered/Resolved]
  - Abdominal pain upper [Recovered/Resolved]
  - Pneumonia [Recovered/Resolved]
  - Visual impairment [Not Recovered/Not Resolved]
  - Lacrimation increased [Not Recovered/Not Resolved]
  - Post procedural complication [Recovering/Resolving]
  - Headache [Recovered/Resolved]

NARRATIVE: CASE EVENT DATE: 20210203
